FAERS Safety Report 19702036 (Version 7)
Quarter: 2022Q1

REPORT INFORMATION
  Report Type: Report from Study
  Country: US (occurrence: US)
  Receive Date: 20210814
  Receipt Date: 20220316
  Transmission Date: 20220423
  Serious: Yes (Death)
  Sender: FDA-Public Use
  Company Number: US-NOVARTISPH-NVSC2021US180059

PATIENT
  Age: 79 Year
  Sex: Female

DRUGS (1)
  1. ENTRESTO [Suspect]
     Active Substance: SACUBITRIL\VALSARTAN
     Indication: Cardiac failure
     Dosage: 50 MG (24/26 MG), BID
     Route: 048
     Dates: start: 20210729, end: 202108

REACTIONS (9)
  - Death [Fatal]
  - Heart rate decreased [Unknown]
  - Weight decreased [Unknown]
  - Cardiac valve disease [Unknown]
  - Feeling abnormal [Not Recovered/Not Resolved]
  - Heart valve incompetence [Unknown]
  - Nausea [Unknown]
  - Hypotension [Unknown]
  - Overdose [Unknown]

NARRATIVE: CASE EVENT DATE: 20210802
